FAERS Safety Report 8794556 (Version 1)
Quarter: 2012Q4

REPORT INFORMATION
  Report Type: 
  Country: US (occurrence: US)
  Receive Date: 20120917
  Receipt Date: 20120917
  Transmission Date: 20130627
  Serious: Yes (Hospitalization, Other)
  Sender: FDA-Public Use
  Company Number: US-BAYER-2012-093886

PATIENT
  Age: 67 Year
  Sex: Female
  Weight: 68.03 kg

DRUGS (7)
  1. BAYER GENUINE ASPIRIN ORIGINAL STRENGTH [Suspect]
  2. CELEBREX [Suspect]
     Indication: OSTEOARTHRITIS
     Dosage: 200 mg, QD
     Dates: end: 201106
  3. CELEBREX [Suspect]
     Indication: OSTEOARTHRITIS
     Dosage: 200 mg, 3 times per week
  4. PLAVIX [Concomitant]
     Dosage: UNK
     Dates: end: 201106
  5. PLAVIX [Concomitant]
     Dosage: 75 mg, UNK
  6. NSAID^S [Concomitant]
     Dosage: UNK
     Dates: end: 201106
  7. UNSPECIFIED MEDICATION [Concomitant]
     Indication: PRODUCT USED FOR UNKNOWN INDICATION
     Dosage: UNK
     Dates: end: 2011

REACTIONS (4)
  - Gastrointestinal ulcer haemorrhage [Recovered/Resolved]
  - Anaemia [Recovered/Resolved]
  - Mental impairment [Unknown]
  - Stress [Unknown]
